FAERS Safety Report 9998112 (Version 1)
Quarter: 2014Q1

REPORT INFORMATION
  Report Type: Spontaneous
  Country: US (occurrence: None)
  Receive Date: 20140221
  Receipt Date: 20140221
  Transmission Date: 20141002
  Serious: Yes (Other)
  Sender: FDA-Public Use
  Company Number: 1000052335

PATIENT
  Age: 70 Year
  Sex: Male

DRUGS (4)
  1. TUDORZA PRESSAIR (ACLIDINIUM BROMIDE) (400 MICROGRAM, POWDER) [Suspect]
     Indication: CHRONIC OBSTRUCTIVE PULMONARY DISEASE
     Dosage: (400 MCG, 2 IN 1 D)
     Route: 055
     Dates: start: 201312, end: 201312
  2. ALBUTEROL (ALBUTEROL) [Concomitant]
  3. TRAMADOL [Concomitant]
  4. ZOLPIDEM [Concomitant]

REACTIONS (5)
  - Rash [None]
  - Pruritus [None]
  - Chapped lips [None]
  - Lip dry [None]
  - Cheilitis [None]
